FAERS Safety Report 14629660 (Version 1)
Quarter: 2018Q1

REPORT INFORMATION
  Report Type: Spontaneous
  Country: US (occurrence: US)
  Receive Date: 20180312
  Receipt Date: 20180312
  Transmission Date: 20180509
  Serious: Yes (Other)
  Sender: FDA-Public Use
  Company Number: None

PATIENT
  Age: 71 Year
  Weight: 54.9 kg

DRUGS (3)
  1. NEFAZODONE [Suspect]
     Active Substance: NEFAZODONE
     Indication: DEPRESSION
     Route: 048
  2. SPIRONOLACTONE. [Concomitant]
     Active Substance: SPIRONOLACTONE
  3. NEFAZODONE [Suspect]
     Active Substance: NEFAZODONE
     Indication: ANXIETY
     Route: 048

REACTIONS (3)
  - Osteoarthritis [None]
  - Therapy non-responder [None]
  - Arthralgia [None]
